FAERS Safety Report 15417827 (Version 2)
Quarter: 2018Q4

REPORT INFORMATION
  Report Type: Report from Study
  Country: MX (occurrence: MX)
  Receive Date: 20180924
  Receipt Date: 20181015
  Transmission Date: 20190204
  Serious: No
  Sender: FDA-Public Use
  Company Number: PHHY2018MX103057

PATIENT
  Sex: Male
  Weight: 80 kg

DRUGS (3)
  1. EXFORGE HCT [Suspect]
     Active Substance: AMLODIPINE BESYLATE\HYDROCHLOROTHIAZIDE\VALSARTAN
     Indication: HYPERTENSION
     Dosage: 1 DF (AMLODIPINE 5 MG, HYDROCHLOROTHIAZIDE 12.5 MG, VALSARTAN 160 MG), QD
     Route: 048
     Dates: start: 20180903
  2. ZYMAR [Concomitant]
     Active Substance: GATIFLOXACIN
     Indication: INFECTION PROPHYLAXIS
     Dosage: 1 DF, QD
     Route: 047
     Dates: start: 201806
  3. PREDNEFRIN [Concomitant]
     Indication: INFECTION PROPHYLAXIS
     Dosage: 1 DF, Q4H
     Route: 047
     Dates: start: 20181001

REACTIONS (1)
  - No adverse event [Unknown]
